FAERS Safety Report 10332741 (Version 3)
Quarter: 2014Q4

REPORT INFORMATION
  Report Type: Spontaneous
  Country: JP (occurrence: JP)
  Receive Date: 20140722
  Receipt Date: 20141027
  Transmission Date: 20150528
  Serious: Yes (Hospitalization, Other)
  Sender: FDA-Public Use
  Company Number: PHHY2014JP089457

PATIENT
  Age: 73 Year
  Sex: Male

DRUGS (1)
  1. ZOMETA [Suspect]
     Active Substance: ZOLEDRONIC ACID
     Indication: PLASMA CELL MYELOMA
     Dosage: 4 MG, PER ADMINISTRATION
     Route: 065
     Dates: start: 20080121, end: 20100513

REACTIONS (12)
  - Gingival pain [Unknown]
  - Exposed bone in jaw [Recovering/Resolving]
  - Abscess [Unknown]
  - Condition aggravated [Recovering/Resolving]
  - Gingival swelling [Recovering/Resolving]
  - Gingivitis [Unknown]
  - Osteomyelitis [Recovered/Resolved]
  - Dental fistula [Unknown]
  - Gingival ulceration [Unknown]
  - Inflammation [Recovering/Resolving]
  - Pain [Unknown]
  - Gingival erythema [Unknown]

NARRATIVE: CASE EVENT DATE: 20100108
